FAERS Safety Report 6510205-1 (Version None)
Quarter: 2009Q4

REPORT INFORMATION
  Report Type: 
  Country: None (occurrence: None)
  Receive Date: 20091222
  Receipt Date: 20091216
  Transmission Date: 20100525
  Serious: Yes (Hospitalization)
  Sender: FDA-Public Use
  Company Number: US-BRISTOL-MYERS SQUIBB COMPANY-14898910

PATIENT
  Age: 44 Year
  Sex: Female
  Weight: 100 kg

DRUGS (3)
  1. ERBITUX [Suspect]
     Indication: CERVIX CARCINOMA
     Dosage: 400 MG/M2 INITIAL LOADING DOSE WEEK 1 THEN 250 MG/M2 X 5 WEEKS
     Dates: start: 20091201
  2. CISPLATIN [Suspect]
     Indication: CERVIX CARCINOMA
     Dosage: 30MG/M2/WEEK X 6 WEEK
     Dates: start: 20091201
  3. RADIOTHERAPY [Suspect]
     Indication: CERVIX CARCINOMA

REACTIONS (5)
  - BRONCHITIS [None]
  - HAEMOGLOBIN DECREASED [None]
  - NAUSEA [None]
  - URINARY TRACT INFECTION [None]
  - VOMITING [None]
